FAERS Safety Report 7222193-3 (Version None)
Quarter: 2011Q1

REPORT INFORMATION
  Report Type: 
  Country: None (occurrence: None)
  Receive Date: 20110112
  Receipt Date: 20101117
  Transmission Date: 20110831
  Serious: Yes (Hospitalization)
  Sender: FDA-Public Use
  Company Number: DE-CEPHALON-2011000162

PATIENT
  Age: 71 Year
  Sex: Female
  Weight: 59 kg

DRUGS (6)
  1. RANITIDINE HCL [Concomitant]
     Dates: start: 20100824
  2. DEXAMETHASON [Concomitant]
     Dates: start: 20100824
  3. ACETAMINOPHEN [Concomitant]
     Dates: start: 20100824
  4. BENDAMUSTINE HCL [Suspect]
     Indication: DIFFUSE LARGE B-CELL LYMPHOMA
     Route: 042
     Dates: start: 20100824
  5. PREDNISOLONE [Concomitant]
     Dates: start: 20100824
  6. MABTHERA [Suspect]
     Indication: DIFFUSE LARGE B-CELL LYMPHOMA
     Route: 042
     Dates: start: 20100824

REACTIONS (2)
  - GASTROINTESTINAL PAIN [None]
  - DIARRHOEA [None]
